FAERS Safety Report 15470175 (Version 1)
Quarter: 2018Q4

REPORT INFORMATION
  Report Type: Spontaneous
  Country: US (occurrence: US)
  Receive Date: 20181005
  Receipt Date: 20181005
  Transmission Date: 20190205
  Serious: No
  Sender: FDA-Public Use
  Company Number: US-TEVA-2018-US-959915

PATIENT
  Sex: Male

DRUGS (2)
  1. CICLOPIROX. [Suspect]
     Active Substance: CICLOPIROX
     Route: 061
  2. CLOBETASOL PROPIONATE TOPICAL SOLUTION [Suspect]
     Active Substance: CLOBETASOL PROPIONATE
     Route: 061
     Dates: start: 201805

REACTIONS (3)
  - Rash [Recovered/Resolved]
  - Muscle spasms [Recovered/Resolved]
  - Muscular weakness [Recovered/Resolved]
